FAERS Safety Report 10184041 (Version 1)
Quarter: 2014Q2

REPORT INFORMATION
  Report Type: Spontaneous
  Country: JP (occurrence: JP)
  Receive Date: 20140520
  Receipt Date: 20140520
  Transmission Date: 20141212
  Serious: Yes (Other)
  Sender: FDA-Public Use
  Company Number: JP-GLAXOSMITHKLINE-B0994504A

PATIENT
  Age: 12 Year
  Sex: 0
  Weight: 36 kg

DRUGS (2)
  1. ZOVIRAX [Suspect]
     Indication: ORAL HERPES
     Dosage: 1000MG PER DAY
     Route: 042
     Dates: start: 20140512
  2. SOLDEM [Concomitant]
     Dosage: 1IUAX PER DAY
     Route: 042
     Dates: start: 20140512

REACTIONS (5)
  - Renal impairment [Unknown]
  - Blood creatinine increased [Unknown]
  - Blood urea increased [Unknown]
  - Blood uric acid increased [Unknown]
  - Overdose [Unknown]
